FAERS Safety Report 7457508-4 (Version None)
Quarter: 2011Q2

REPORT INFORMATION
  Report Type: 
  Country: None (occurrence: None)
  Receive Date: 20110502
  Receipt Date: 20110502
  Transmission Date: 20111010
  Serious: No
  Sender: FDA-Public Use
  Company Number: None

PATIENT
  Age: 79 Year
  Sex: Female
  Weight: 57.6068 kg

DRUGS (1)
  1. CLONIDINE [Suspect]
     Indication: BLOOD PRESSURE FLUCTUATION
     Dosage: OLD PILL USED FOR 8 YRS NO PROBLEM 0 WH MYLAN 152
     Dates: start: 20110218

REACTIONS (3)
  - SOMNOLENCE [None]
  - PRODUCT MEASURED POTENCY ISSUE [None]
  - PRODUCT SUBSTITUTION ISSUE [None]
